FAERS Safety Report 12689594 (Version 1)
Quarter: 2016Q3

REPORT INFORMATION
  Report Type: Spontaneous
  Country: US (occurrence: None)
  Receive Date: 20160825
  Receipt Date: 20160825
  Transmission Date: 20161109
  Serious: Yes (Hospitalization)
  Sender: FDA-Public Use
  Company Number: None

PATIENT
  Age: 46 Year
  Sex: Male

DRUGS (2)
  1. CREON [Suspect]
     Active Substance: PANCRELIPASE AMYLASE\PANCRELIPASE LIPASE\PANCRELIPASE PROTEASE
     Indication: CYSTIC FIBROSIS
     Route: 048
     Dates: start: 20150124
  2. LEVEMIR [Suspect]
     Active Substance: INSULIN DETEMIR
     Indication: CYSTIC FIBROSIS
     Route: 058
     Dates: start: 20150714

REACTIONS (1)
  - Infective pulmonary exacerbation of cystic fibrosis [None]
